FAERS Safety Report 4628692-2 (Version None)
Quarter: 2005Q1

REPORT INFORMATION
  Report Type: 
  Country: None (occurrence: None)
  Receive Date: 20050107
  Receipt Date: 20040916
  Transmission Date: 20050727
  Serious: No
  Sender: FDA-Public Use
  Company Number: 234411K04USA

PATIENT
  Age: 49 Year
  Sex: Female

DRUGS (2)
  1. REBIF [Suspect]
     Indication: MULTIPLE SCLEROSIS
     Dosage: 44 MCG, 2 IN 1 WEEKS
     Dates: start: 20020624
  2. REBIF [Suspect]
     Indication: MULTIPLE SCLEROSIS
     Dosage: 44 MCG, 2 IN 1 WEEKS
     Dates: start: 20040901

REACTIONS (6)
  - COORDINATION ABNORMAL [None]
  - DECREASED ACTIVITY [None]
  - DYSSTASIA [None]
  - HYPOKINESIA [None]
  - MALAISE [None]
  - MOBILITY DECREASED [None]
